FAERS Safety Report 12629583 (Version 1)
Quarter: 2016Q3

REPORT INFORMATION
  Report Type: Spontaneous
  Country: US (occurrence: US)
  Receive Date: 20160808
  Receipt Date: 20160808
  Transmission Date: 20161109
  Serious: Yes (Other)
  Sender: FDA-Public Use
  Company Number: US-GLAXOSMITHKLINE-US2016GSK112020

PATIENT
  Age: 33 Year
  Sex: Male

DRUGS (2)
  1. LAMICTAL XR [Suspect]
     Active Substance: LAMOTRIGINE
     Indication: SEIZURE
     Dosage: 200 MG, UNK
     Dates: start: 2012
  2. LAMICTAL XR [Suspect]
     Active Substance: LAMOTRIGINE
     Indication: BRAIN NEOPLASM

REACTIONS (4)
  - Brain operation [Unknown]
  - Chemotherapy [Unknown]
  - Brain neoplasm [Unknown]
  - Brain neoplasm malignant [Unknown]

NARRATIVE: CASE EVENT DATE: 20160116
